FAERS Safety Report 8887167 (Version 2)
Quarter: 2012Q4

REPORT INFORMATION
  Report Type: 
  Country: PH (occurrence: PH)
  Receive Date: 20121105
  Receipt Date: 20121107
  Transmission Date: 20130627
  Serious: Yes (Death, Other)
  Sender: FDA-Public Use
  Company Number: PHHY2012PH092544

PATIENT

DRUGS (3)
  1. SIMULECT [Suspect]
     Indication: TRANSPLANT
     Dosage: UNK UKN, UNK
     Dates: start: 20121009
  2. TACROLIMUS [Concomitant]
  3. MYFORTIC [Concomitant]

REACTIONS (2)
  - Death [Fatal]
  - Renal tubular necrosis [Unknown]
